FAERS Safety Report 9689561 (Version 1)
Quarter: 2013Q4

REPORT INFORMATION
  Report Type: Spontaneous
  Country: US (occurrence: US)
  Receive Date: 20131115
  Receipt Date: 20131115
  Transmission Date: 20140711
  Serious: Yes (Hospitalization, Other)
  Sender: FDA-Public Use
  Company Number: US-JNJFOC-20131102142

PATIENT
  Age: 3 Year
  Sex: Male
  Weight: 19.96 kg

DRUGS (3)
  1. CHILDRENS SUDAFED PE COLD AND COUGH [Suspect]
     Indication: ACCIDENTAL EXPOSURE TO PRODUCT
     Dosage: ALL OF IT, WHOLE BOTTLE
     Route: 048
     Dates: start: 20131103, end: 20131103
  2. CHILDRENS BENADRYL ALLERGY [Suspect]
     Route: 048
  3. CHILDRENS BENADRYL ALLERGY [Suspect]
     Indication: ACCIDENTAL EXPOSURE TO PRODUCT
     Route: 048

REACTIONS (5)
  - Accidental exposure to product by child [Unknown]
  - Staring [Unknown]
  - Abdominal discomfort [Recovered/Resolved]
  - Diarrhoea [Unknown]
  - Somnolence [Unknown]
